FAERS Safety Report 7522226-0 (Version None)
Quarter: 2011Q2

REPORT INFORMATION
  Report Type: 
  Country: None (occurrence: None)
  Receive Date: 20110603
  Receipt Date: 20110531
  Transmission Date: 20111010
  Serious: Yes (Other)
  Sender: FDA-Public Use
  Company Number: CA-PFIZER INC-2011117507

PATIENT
  Age: 35 Year
  Sex: Male

DRUGS (3)
  1. LAMOTRIGINE [Concomitant]
     Dosage: UNK
  2. VARENICLINE TARTRATE [Suspect]
  3. CELEXA [Concomitant]
     Dosage: UNK

REACTIONS (2)
  - SOMNAMBULISM [None]
  - ABNORMAL SLEEP-RELATED EVENT [None]
